FAERS Safety Report 17027216 (Version 1)
Quarter: 2019Q4

REPORT INFORMATION
  Report Type: Spontaneous
  Country: NO (occurrence: NO)
  Receive Date: 20191113
  Receipt Date: 20191113
  Transmission Date: 20200122
  Serious: Yes (Hospitalization)
  Sender: FDA-Public Use
  Company Number: NO-TRIS PHARMA, INC.-19NO008587

PATIENT

DRUGS (1)
  1. METHYLPHENIDATE HYDROCHLORIDE. [Suspect]
     Active Substance: METHYLPHENIDATE HYDROCHLORIDE
     Indication: SUBSTANCE USE
     Route: 065

REACTIONS (9)
  - Toxicity to various agents [Unknown]
  - Drug abuse [Unknown]
  - Psychotic disorder [Unknown]
  - Palpitations [Unknown]
  - Hallucination [Unknown]
  - Depressed level of consciousness [Unknown]
  - Anxiety [Unknown]
  - Agitation [Unknown]
  - Vomiting [Unknown]
